FAERS Safety Report 4342108-5 (Version None)
Quarter: 2004Q2

REPORT INFORMATION
  Report Type: 
  Country: None (occurrence: None)
  Receive Date: 20040409
  Receipt Date: 20040226
  Transmission Date: 20050107
  Serious: Yes (Hospitalization)
  Sender: FDA-Public Use
  Company Number: 04P-163-0251448-00

PATIENT
  Age: 19 Year
  Sex: Female
  Weight: 77.1115 kg

DRUGS (4)
  1. DEPAKOTE [Suspect]
     Indication: BIPOLAR DISORDER
     Dosage: PER ORAL
     Route: 048
     Dates: start: 20020601
  2. LITHIUM CARBONATE [Concomitant]
  3. QUETIAPINE [Concomitant]
  4. RABEPRAZOLE SODIUM [Concomitant]

REACTIONS (2)
  - PANCREATITIS [None]
  - WEIGHT INCREASED [None]
